FAERS Safety Report 14726895 (Version 1)
Quarter: 2018Q2

REPORT INFORMATION
  Report Type: Report from Study
  Country: US (occurrence: US)
  Receive Date: 20180406
  Receipt Date: 20180406
  Transmission Date: 20180711
  Serious: Yes (Other)
  Sender: FDA-Public Use
  Company Number: US-BAYER-2018-047795

PATIENT
  Age: 70 Year
  Sex: Male

DRUGS (1)
  1. NEXAVAR [Suspect]
     Active Substance: SORAFENIB
     Indication: HEPATOCELLULAR CARCINOMA
     Dosage: 400 MG, BID
     Route: 048
     Dates: start: 20180301

REACTIONS (15)
  - Fatigue [None]
  - Weight decreased [None]
  - Dry skin [None]
  - Headache [None]
  - Hemianaesthesia [None]
  - Blood pressure decreased [None]
  - Asthenia [None]
  - Epistaxis [None]
  - Diarrhoea [None]
  - Abdominal pain [None]
  - Groin infection [None]
  - Dysphonia [None]
  - Balance disorder [None]
  - Decreased appetite [None]
  - Dyspnoea [None]

NARRATIVE: CASE EVENT DATE: 201803
